FAERS Safety Report 19755258 (Version 1)
Quarter: 2021Q3

REPORT INFORMATION
  Report Type: Spontaneous
  Country: US (occurrence: US)
  Receive Date: 20210827
  Receipt Date: 20210827
  Transmission Date: 20211014
  Serious: Yes (Hospitalization, Other)
  Sender: FDA-Public Use
  Company Number: US-HIKMA PHARMACEUTICALS USA INC.-US-H14001-21-03743

PATIENT
  Age: 12 Year
  Sex: Male
  Weight: 79.7 kg

DRUGS (6)
  1. METHOTREXATE. [Suspect]
     Active Substance: METHOTREXATE
     Dosage: 15 MILLIGRAM, ONCE (DAYS 1 AND 29)
     Route: 037
     Dates: start: 20210624
  2. LEUCOVORIN. [Suspect]
     Active Substance: LEUCOVORIN
     Indication: ACUTE LYMPHOCYTIC LEUKAEMIA
     Dosage: 28.8 MILLIGRAM, Q6H (STARTING HOURS 42 POST MTX)
     Route: 042
     Dates: start: 20210626
  3. METHOTREXATE. [Suspect]
     Active Substance: METHOTREXATE
     Indication: ACUTE LYMPHOCYTIC LEUKAEMIA
     Dosage: 9600 MILLIGRAM ONCE (DAYS 1, 15, 29)
     Route: 042
     Dates: start: 20210624
  4. VINCRISTINE [Suspect]
     Active Substance: VINCRISTINE
     Indication: ACUTE LYMPHOCYTIC LEUKAEMIA
     Dosage: 2 MILLIGRAM ONCE (DAYS 1, 15, AND 29)
     Route: 042
     Dates: start: 20210624
  5. MERCAPTOPURINE. [Suspect]
     Active Substance: MERCAPTOPURINE
     Indication: ACUTE LYMPHOCYTIC LEUKAEMIA
     Dosage: 50 MG M?F / 25 MG S?S (DAYS 1?56)
     Route: 048
     Dates: start: 20210624
  6. INCB018424 [Suspect]
     Active Substance: RUXOLITINIB
     Indication: ACUTE LYMPHOCYTIC LEUKAEMIA
     Dosage: 70 MILLIGRAM, BID (DAYS 1?14 AND 29?42)
     Route: 048
     Dates: start: 20210624

REACTIONS (6)
  - Coronavirus infection [Unknown]
  - Neutropenia [Unknown]
  - Pyrexia [Unknown]
  - Febrile neutropenia [Recovering/Resolving]
  - Cough [Unknown]
  - Bacteraemia [Not Recovered/Not Resolved]

NARRATIVE: CASE EVENT DATE: 20210727
